FAERS Safety Report 13282674 (Version 2)
Quarter: 2017Q2

REPORT INFORMATION
  Report Type: Spontaneous
  Country: US (occurrence: US)
  Receive Date: 20170301
  Receipt Date: 20170510
  Transmission Date: 20170830
  Serious: No
  Sender: FDA-Public Use
  Company Number: US-BAYER-2017-039861

PATIENT
  Age: 35 Year
  Sex: Female

DRUGS (4)
  1. FINACEA [Suspect]
     Active Substance: AZELAIC ACID
     Indication: ROSACEA
     Dosage: UNK, BID
     Route: 061
     Dates: start: 201612, end: 201702
  2. FINACEA [Suspect]
     Active Substance: AZELAIC ACID
     Indication: ROSACEA
  3. FINACEA [Suspect]
     Active Substance: AZELAIC ACID
     Indication: ACNE
  4. FINACEA [Suspect]
     Active Substance: AZELAIC ACID
     Indication: ACNE

REACTIONS (2)
  - Expired product administered [None]
  - Drug ineffective [None]

NARRATIVE: CASE EVENT DATE: 201612
